FAERS Safety Report 8472172-3 (Version None)
Quarter: 2012Q2

REPORT INFORMATION
  Report Type: 
  Country: None (occurrence: None)
  Receive Date: 20120323
  Receipt Date: 20111128
  Transmission Date: 20120825
  Serious: Yes (Hospitalization, Other)
  Sender: FDA-Public Use
  Company Number: 163-21880-11082725

PATIENT
  Age: 72 Year
  Sex: Male
  Weight: 67.1324 kg

DRUGS (15)
  1. DECADRON [Concomitant]
  2. CALCIUM (CALCIUM)(CAPSULES) [Concomitant]
  3. ALAVERT (LORATADINE)(TABLETS) [Concomitant]
  4. FOSAMAX [Concomitant]
  5. FLONASE SUSPENSION (FLUTICASONE PROPIONATE)(NASAL DROPS (INCLUDING NAS [Concomitant]
  6. CELEXA [Concomitant]
  7. LEVAQUIN [Concomitant]
  8. AVODART (DUTASTERIDE)(CAPSULES) [Concomitant]
  9. COSOPT (COSOPT)(EYE DROPS) [Concomitant]
  10. VITAMIN C (ASCORBIC ACID)(TABLETS) [Concomitant]
  11. REVLIMID [Suspect]
     Indication: MULTIPLE MYELOMA
     Dosage: 25 MG,1 IN 1 D, PO,  5 MG,1 IN 1 D, PO, 10 MG, QD X 21 DAYS, PO
     Route: 048
     Dates: start: 20080501, end: 20090501
  12. REVLIMID [Suspect]
     Indication: MULTIPLE MYELOMA
     Dosage: 25 MG,1 IN 1 D, PO,  5 MG,1 IN 1 D, PO, 10 MG, QD X 21 DAYS, PO
     Route: 048
     Dates: start: 20110901
  13. REVLIMID [Suspect]
     Indication: MULTIPLE MYELOMA
     Dosage: 25 MG,1 IN 1 D, PO,  5 MG,1 IN 1 D, PO, 10 MG, QD X 21 DAYS, PO
     Route: 048
     Dates: start: 20090501
  14. AMBIEN [Concomitant]
  15. MULTIVITAMINS (MULTIVITAMINS)(TABLETS) [Concomitant]

REACTIONS (5)
  - NEUTROPHIL COUNT DECREASED [None]
  - BLOOD IMMUNOGLOBULIN G INCREASED [None]
  - LIGHT CHAIN ANALYSIS INCREASED [None]
  - BRONCHITIS [None]
  - PNEUMONIA [None]
